FAERS Safety Report 10166108 (Version 1)
Quarter: 2014Q2

REPORT INFORMATION
  Report Type: Spontaneous
  Country: US (occurrence: US)
  Receive Date: 20140512
  Receipt Date: 20140512
  Transmission Date: 20141212
  Serious: Yes (Hospitalization)
  Sender: FDA-Public Use
  Company Number: US-BEH-2014042376

PATIENT
  Age: 56 Year
  Sex: Female

DRUGS (1)
  1. HIZENTRA [Suspect]

REACTIONS (2)
  - Intestinal obstruction [Unknown]
  - Gastrointestinal disorder [Unknown]
